FAERS Safety Report 6415720-7 (Version None)
Quarter: 2009Q4

REPORT INFORMATION
  Report Type: 
  Country: None (occurrence: None)
  Receive Date: 20091027
  Receipt Date: 20091014
  Transmission Date: 20100525
  Serious: Yes (Other)
  Sender: FDA-Public Use
  Company Number: US-PFIZER INC-2009253583

PATIENT
  Sex: Female
  Weight: 62.585 kg

DRUGS (8)
  1. LYRICA [Suspect]
     Indication: DIABETIC NEUROPATHY
     Dosage: 75 MG, 2X/DAY
     Route: 048
     Dates: start: 20090722, end: 20090722
  2. LYRICA [Suspect]
     Indication: CARPAL TUNNEL SYNDROME
  3. APIDRA [Concomitant]
     Route: 058
  4. LANTUS [Concomitant]
     Route: 058
  5. NEXIUM [Concomitant]
     Route: 048
  6. XYZAL [Concomitant]
     Route: 048
  7. NAPROXEN [Concomitant]
     Dosage: 500 MG, 2X/DAY
     Dates: start: 20090701
  8. MULTI-VITAMINS [Concomitant]
     Route: 048

REACTIONS (9)
  - BLOOD GLUCOSE INCREASED [None]
  - DEHYDRATION [None]
  - DIZZINESS [None]
  - GAIT DISTURBANCE [None]
  - HEAD DISCOMFORT [None]
  - HYPERHIDROSIS [None]
  - HYPERVENTILATION [None]
  - MALAISE [None]
  - SPEECH DISORDER [None]
